FAERS Safety Report 6088195-8 (Version None)
Quarter: 2009Q1

REPORT INFORMATION
  Report Type: 
  Country: None (occurrence: None)
  Receive Date: 20090219
  Receipt Date: 20090206
  Transmission Date: 20090719
  Serious: Yes (Other)
  Sender: FDA-Public Use
  Company Number: 1000004763

PATIENT
  Age: 70 Year
  Sex: Female

DRUGS (3)
  1. MEMANTINE HCL [Suspect]
     Indication: DEMENTIA
     Dosage: (20 MG)
  2. ESCITALOPRAM [Suspect]
     Dosage: (10 MG), ORAL
     Route: 048
  3. DONEPEZIL HCL [Suspect]

REACTIONS (3)
  - HYPOMANIA [None]
  - MANIA [None]
  - PARANOIA [None]
